FAERS Safety Report 10178855 (Version 2)
Quarter: 2014Q2

REPORT INFORMATION
  Report Type: Spontaneous
  Country: US (occurrence: None)
  Receive Date: 20140515
  Receipt Date: 20140520
  Transmission Date: 20141212
  Serious: Yes (Other)
  Sender: FDA-Public Use
  Company Number: 140157

PATIENT
  Age: 36 Year
  Sex: Female

DRUGS (6)
  1. GOLYTELY [Suspect]
     Indication: OFF LABEL USE
     Route: 048
     Dates: start: 20140502, end: 20140502
  2. PAXIL [Concomitant]
  3. PROTONIX [Concomitant]
  4. NEURONTIN [Concomitant]
  5. LIDOCAINE [Concomitant]
  6. CARAFATE [Concomitant]

REACTIONS (8)
  - Oedema peripheral [None]
  - Abdominal distension [None]
  - Hepatomegaly [None]
  - Ascites [None]
  - Swelling [None]
  - Liver disorder [None]
  - Renal disorder [None]
  - Drug ineffective [None]
